FAERS Safety Report 8979265 (Version 1)
Quarter: 2012Q4

REPORT INFORMATION
  Report Type: 
  Country: US (occurrence: US)
  Receive Date: 20121221
  Receipt Date: 20121221
  Transmission Date: 20130627
  Serious: No
  Sender: FDA-Public Use
  Company Number: US-BAYER-2012-134048

PATIENT
  Age: 37 Year
  Sex: Female
  Weight: 54 kg

DRUGS (4)
  1. ALEVE CAPLET/TABLET,MIDOL EXTENDED RELIEF CAPLET [Suspect]
     Indication: GENERAL BODY PAIN
     Dosage: 3 DF, ONCE
     Route: 048
     Dates: start: 20121213
  2. CONTRACEPTIVES NOS [Concomitant]
  3. ADVIL [Concomitant]
  4. EQUATE [Concomitant]

REACTIONS (1)
  - Inappropriate schedule of drug administration [None]
